FAERS Safety Report 8035146-2 (Version None)
Quarter: 2012Q1

REPORT INFORMATION
  Report Type: 
  Country: None (occurrence: None)
  Receive Date: 20120111
  Receipt Date: 20120103
  Transmission Date: 20120608
  Serious: No
  Sender: FDA-Public Use
  Company Number: US-BIOGENIDEC-2012BI000152

PATIENT
  Sex: Male

DRUGS (1)
  1. AVONEX [Suspect]
     Indication: MULTIPLE SCLEROSIS
     Route: 030
     Dates: start: 20111202

REACTIONS (4)
  - INJECTION SITE HAEMORRHAGE [None]
  - DIZZINESS [None]
  - NAUSEA [None]
  - INFLUENZA LIKE ILLNESS [None]
